FAERS Safety Report 17243518 (Version 1)
Quarter: 2020Q1

REPORT INFORMATION
  Report Type: Report from Study
  Country: US (occurrence: US)
  Receive Date: 20200107
  Receipt Date: 20200107
  Transmission Date: 20200409
  Serious: Yes (Other)
  Sender: FDA-Public Use
  Company Number: US-SHIRE-US202000028

PATIENT
  Sex: Female

DRUGS (1)
  1. HUMAN NORMAL IMMUNOGLOBULIN; LIQUID 20 [Suspect]
     Active Substance: HUMAN IMMUNOGLOBULIN G
     Indication: IMMUNODEFICIENCY COMMON VARIABLE
     Dosage: UNK, 1X/2WKS (EVERY OTHER WEEK)
     Route: 065

REACTIONS (4)
  - Cardiac disorder [Recovering/Resolving]
  - Seizure [Recovering/Resolving]
  - Swelling [Recovering/Resolving]
  - Anaphylactic shock [Recovering/Resolving]
